FAERS Safety Report 5794730-7 (Version None)
Quarter: 2008Q2

REPORT INFORMATION
  Report Type: 
  Country: None (occurrence: None)
  Receive Date: 20080626
  Receipt Date: 20080613
  Transmission Date: 20081010
  Serious: Yes (Other)
  Sender: FDA-Public Use
  Company Number: E2020-02715-SPO-BE

PATIENT
  Age: 75 Year
  Sex: Female
  Weight: 71 kg

DRUGS (9)
  1. ARICEPT [Suspect]
     Indication: DEMENTIA ALZHEIMER'S TYPE
     Dosage: 5 MG, 1 IN 1 D, ORAL; 5 MG, 1 IN 1 D, ORAL
     Route: 048
     Dates: start: 20071121, end: 20080306
  2. ARICEPT [Suspect]
     Indication: DEMENTIA ALZHEIMER'S TYPE
     Dosage: 5 MG, 1 IN 1 D, ORAL; 5 MG, 1 IN 1 D, ORAL
     Route: 048
     Dates: start: 20080310, end: 20080311
  3. PERINDOPRIL ERBUMINE [Concomitant]
  4. INDAPAMIDE [Concomitant]
  5. CARVEDILOL [Concomitant]
  6. CORUNO (MOLSIDOMINE) [Concomitant]
  7. ASPIRIN [Concomitant]
  8. FURADANTIN [Concomitant]
  9. PRAXILENE (NAFTIDROFURYL OXALATE) [Concomitant]

REACTIONS (17)
  - ALANINE AMINOTRANSFERASE INCREASED [None]
  - ASPARTATE AMINOTRANSFERASE INCREASED [None]
  - BLOOD ALKALINE PHOSPHATASE INCREASED [None]
  - BLOOD PRESSURE DECREASED [None]
  - CARDIAC DISORDER [None]
  - CARDIAC FAILURE [None]
  - CHILLS [None]
  - COMA [None]
  - DYSPNOEA EXERTIONAL [None]
  - GAMMA-GLUTAMYLTRANSFERASE INCREASED [None]
  - GASTRITIS [None]
  - GASTROINTESTINAL DISORDER [None]
  - HEADACHE [None]
  - HYPERTENSION [None]
  - INSOMNIA [None]
  - LIVER DISORDER [None]
  - LUNG INFILTRATION [None]
